FAERS Safety Report 10334998 (Version 1)
Quarter: 2014Q3

REPORT INFORMATION
  Report Type: Spontaneous
  Country: US (occurrence: None)
  Receive Date: 20140721
  Receipt Date: 20140721
  Transmission Date: 20150326
  Serious: Yes (Hospitalization)
  Sender: FDA-Public Use
  Company Number: C-14-089

PATIENT
  Age: 49 Year
  Sex: Female

DRUGS (1)
  1. PSEUDOEPHEDRINE [Suspect]
     Active Substance: PSEUDOEPHEDRINE
     Indication: NASAL CONGESTION
     Route: 048

REACTIONS (6)
  - Diarrhoea haemorrhagic [None]
  - Abdominal pain [None]
  - Nausea [None]
  - Defaecation urgency [None]
  - Leukocytosis [None]
  - Colitis ischaemic [None]
